FAERS Safety Report 20773875 (Version 5)
Quarter: 2025Q1

REPORT INFORMATION
  Report Type: Spontaneous
  Country: GB (occurrence: GB)
  Receive Date: 20220502
  Receipt Date: 20250325
  Transmission Date: 20250409
  Serious: Yes (Hospitalization)
  Sender: VERTEX
  Company Number: GB-VERTEX PHARMACEUTICALS-2022-006406

PATIENT
  Age: 0 Year
  Sex: Male
  Weight: 3.4 kg

DRUGS (4)
  1. ELEXACAFTOR\IVACAFTOR\TEZACAFTOR [Suspect]
     Active Substance: ELEXACAFTOR\IVACAFTOR\TEZACAFTOR
     Indication: Cystic fibrosis
     Dosage: 2 TABLETS IN AM
     Route: 048
     Dates: start: 20201001
  2. KALYDECO [Suspect]
     Active Substance: IVACAFTOR
     Indication: Cystic fibrosis
     Dosage: 1 TABLET AT NIGHT
     Route: 048
     Dates: start: 20201001
  3. CREON [Concomitant]
     Active Substance: PANCRELIPASE AMYLASE\PANCRELIPASE LIPASE\PANCRELIPASE PROTEASE
     Indication: Cystic fibrosis
     Dates: start: 1987
  4. PARAVIT CF [Concomitant]
     Indication: Cystic fibrosis
     Dosage: 2 CAPSULES ONCE DAILY
     Dates: start: 202207

REACTIONS (2)
  - Exposure via breast milk [Unknown]
  - Intensive care [Recovered/Resolved]

NARRATIVE: CASE EVENT DATE: 20211213
